FAERS Safety Report 9306916 (Version 2)
Quarter: 2013Q3

REPORT INFORMATION
  Report Type: Spontaneous
  Country: US (occurrence: None)
  Receive Date: 20130219
  Receipt Date: 20130815
  Transmission Date: 20140515
  Serious: Yes (Hospitalization)
  Sender: FDA-Public Use
  Company Number: ADR-2012-00423

PATIENT
  Sex: Male

DRUGS (3)
  1. LIORESAL [Suspect]
     Indication: MUSCLE SPASTICITY
  2. LIORESAL [Suspect]
     Indication: SPINAL CORD INJURY
  3. LIORESAL [Suspect]
     Indication: SPINAL CORD DISORDER

REACTIONS (9)
  - Device failure [None]
  - Drug withdrawal syndrome [None]
  - Medical device complication [None]
  - Herpes zoster [None]
  - Amnesia [None]
  - Drug withdrawal syndrome [None]
  - Muscle spasticity [None]
  - Altered state of consciousness [None]
  - Pruritus [None]
